FAERS Safety Report 6361872-7 (Version None)
Quarter: 2009Q3

REPORT INFORMATION
  Report Type: 
  Country: None (occurrence: None)
  Receive Date: 20090821
  Receipt Date: 20090715
  Transmission Date: 20100115
  Serious: No
  Sender: FDA-Public Use
  Company Number: 8049020

PATIENT
  Age: 35 Year
  Sex: Female
  Weight: 82.27 kg

DRUGS (6)
  1. CIMZIA [Suspect]
     Indication: CROHN'S DISEASE
     Dosage: 400 MG 1/2W SC
     Route: 058
     Dates: start: 20090629, end: 20090714
  2. PREDNISONE [Suspect]
     Indication: CROHN'S DISEASE
     Dosage: 3 MG /D PO
     Route: 048
     Dates: start: 20090629
  3. LEXAPRO [Concomitant]
  4. RISPERDAL [Concomitant]
  5. STRATTERA [Concomitant]
  6. MERCAPTOPURINE [Concomitant]

REACTIONS (1)
  - EPISTAXIS [None]
